FAERS Safety Report 6671303-5 (Version None)
Quarter: 2010Q2

REPORT INFORMATION
  Report Type: 
  Country: None (occurrence: None)
  Receive Date: 20100407
  Receipt Date: 20100405
  Transmission Date: 20101027
  Serious: Yes (Hospitalization)
  Sender: FDA-Public Use
  Company Number: A0853447A

PATIENT
  Age: 62 Year
  Sex: Female

DRUGS (3)
  1. NICOTINE POLACRILEX [Suspect]
     Indication: SMOKING CESSATION THERAPY
     Route: 002
  2. PERCOCET [Concomitant]
     Indication: BACK PAIN
     Route: 048
  3. CELEBREX [Concomitant]
     Indication: BACK PAIN
     Route: 048

REACTIONS (6)
  - ABDOMINAL PAIN [None]
  - DIARRHOEA [None]
  - DRUG ADMINISTRATION ERROR [None]
  - GASTRITIS [None]
  - INTENTIONAL DRUG MISUSE [None]
  - NAUSEA [None]
